FAERS Safety Report 6634558-9 (Version None)
Quarter: 2010Q1

REPORT INFORMATION
  Report Type: 
  Country: None (occurrence: None)
  Receive Date: 20100315
  Receipt Date: 20100204
  Transmission Date: 20100710
  Serious: Yes (Hospitalization, Disabling)
  Sender: FDA-Public Use
  Company Number: US-ASTRAZENECA-2010SE05069

PATIENT
  Age: 90 Year
  Sex: Female
  Weight: 60.3 kg

DRUGS (14)
  1. CRESTOR [Suspect]
     Indication: HYPERCHOLESTEROLAEMIA
     Route: 048
     Dates: start: 20030101
  2. CRESTOR [Suspect]
     Route: 048
  3. CRESTOR [Suspect]
     Route: 048
  4. CRESTOR [Suspect]
     Route: 048
     Dates: start: 20100226
  5. TOPROL-XL [Concomitant]
     Route: 048
  6. ASPIRIN [Concomitant]
  7. PLAVIX [Concomitant]
     Indication: CARDIAC DISORDER
  8. NORVASC [Concomitant]
     Indication: CARDIAC DISORDER
  9. KATAFEX [Concomitant]
     Indication: CARDIAC DISORDER
  10. BP MED [Concomitant]
     Indication: BLOOD PRESSURE
  11. NIFOLUMNM [Concomitant]
     Indication: GASTROINTESTINAL DISORDER
  12. ZETIA [Concomitant]
  13. AMORIL [Concomitant]
  14. VITAMINS [Concomitant]

REACTIONS (13)
  - BACK PAIN [None]
  - BLINDNESS [None]
  - CHEST PAIN [None]
  - DRUG DOSE OMISSION [None]
  - DYSSTASIA [None]
  - FATIGUE [None]
  - GAIT DISTURBANCE [None]
  - MUSCLE SPASMS [None]
  - MUSCULAR WEAKNESS [None]
  - NIGHT SWEATS [None]
  - PAIN [None]
  - STENT PLACEMENT [None]
  - THERAPEUTIC RESPONSE DECREASED [None]
